FAERS Safety Report 6190197-8 (Version None)
Quarter: 2009Q2

REPORT INFORMATION
  Report Type: 
  Country: None (occurrence: None)
  Receive Date: 20090427
  Receipt Date: 20080328
  Transmission Date: 20091009
  Serious: Yes (Hospitalization)
  Sender: FDA-Public Use
  Company Number: WAES 0803USA04982

PATIENT
  Age: 22 Week
  Sex: Female

DRUGS (13)
  1. SINGULAIR [Suspect]
     Indication: ASTHMA
     Dosage: DAILY/PO : 4 MG/DAILY/PO
     Route: 048
     Dates: start: 19990901, end: 20010101
  2. SINGULAIR [Suspect]
     Indication: ASTHMA
     Dosage: DAILY/PO : 4 MG/DAILY/PO
     Route: 048
     Dates: start: 20010101, end: 20050101
  3. SINGULAIR [Suspect]
     Indication: ASTHMA
     Dosage: 5 MG/DAILY/PO
     Route: 048
     Dates: start: 20050101
  4. CLARINEX [Suspect]
     Dates: start: 20080301
  5. CLARINEX [Concomitant]
  6. M-M-R II [Concomitant]
  7. TRIHIBIT [Concomitant]
  8. ZYRTEC [Concomitant]
  9. [THERAPY UNSPECIFIED] [Concomitant]
  10. ALBUTEROL [Concomitant]
  11. DIPHTHERIA TOXOID (+) PERTUSSIS [Concomitant]
  12. HEPATITIS B VIRUS VACCINE [Concomitant]
  13. POLIOVIRUS VACCINE INACTIVATED [Concomitant]

REACTIONS (17)
  - ACARODERMATITIS [None]
  - ASTHMA [None]
  - BRONCHIAL HYPERREACTIVITY [None]
  - CANDIDA NAPPY RASH [None]
  - DIARRHOEA [None]
  - ENTEROBACTER PNEUMONIA [None]
  - FACE INJURY [None]
  - HEAD INJURY [None]
  - HELMINTHIC INFECTION [None]
  - MYALGIA [None]
  - OTITIS MEDIA [None]
  - OVERDOSE [None]
  - PYURIA [None]
  - RHINITIS ALLERGIC [None]
  - SINUS DISORDER [None]
  - UPPER RESPIRATORY TRACT INFECTION [None]
  - WRONG TECHNIQUE IN DRUG USAGE PROCESS [None]
